FAERS Safety Report 12082828 (Version 7)
Quarter: 2017Q4

REPORT INFORMATION
  Report Type: Spontaneous
  Country: CA (occurrence: CA)
  Receive Date: 20160217
  Receipt Date: 20171208
  Transmission Date: 20180320
  Serious: Yes (Other)
  Sender: FDA-Public Use
  Company Number: CA-ROCHE-1712228

PATIENT
  Age: 52 Year
  Sex: Female
  Weight: 98 kg

DRUGS (23)
  1. ENBREL [Suspect]
     Active Substance: ETANERCEPT
     Indication: RHEUMATOID ARTHRITIS
     Dosage: THERAPY DURATION: 195 DAYS?FORM OF ADMIN TEXT: SOLUTION SUBCUTANEOUS
     Route: 058
     Dates: start: 2009, end: 2010
  2. PLAQUENIL [Suspect]
     Active Substance: HYDROXYCHLOROQUINE SULFATE
     Indication: RHEUMATOID ARTHRITIS
     Dosage: THERAPY DURATION: 6 YEARS
     Route: 048
     Dates: start: 2014
  3. PLAQUENIL [Suspect]
     Active Substance: HYDROXYCHLOROQUINE SULFATE
     Route: 048
  4. LOZIDE (CANADA) [Concomitant]
  5. ERGOCALCIFEROL. [Concomitant]
     Active Substance: ERGOCALCIFEROL
  6. NAPROSYN [Suspect]
     Active Substance: NAPROXEN
     Indication: PRODUCT USED FOR UNKNOWN INDICATION
     Route: 065
  7. ORENCIA [Suspect]
     Active Substance: ABATACEPT
     Route: 042
  8. ACTEMRA [Suspect]
     Active Substance: TOCILIZUMAB
     Indication: RHEUMATOID ARTHRITIS
     Dosage: 4-8MG/KG
     Route: 042
  9. RAMIPRIL. [Concomitant]
     Active Substance: RAMIPRIL
  10. ENBREL [Suspect]
     Active Substance: ETANERCEPT
     Route: 058
     Dates: start: 20101004, end: 20110416
  11. ACETYLSALICYLIC ACID [Concomitant]
     Active Substance: ASPIRIN
     Route: 065
  12. METFORMIN [Concomitant]
     Active Substance: METFORMIN HYDROCHLORIDE
  13. ARAVA [Suspect]
     Active Substance: LEFLUNOMIDE
     Indication: RHEUMATOID ARTHRITIS
     Dosage: ADEQUATE TRIAL OF 3MONTHS IN 2010
     Route: 048
  14. APO-HYDROXYQUINE [Suspect]
     Active Substance: HYDROXYCHLOROQUINE SULFATE
     Indication: PRODUCT USED FOR UNKNOWN INDICATION
     Route: 048
     Dates: start: 2009, end: 2014
  15. ASA [Concomitant]
     Active Substance: ASPIRIN
     Route: 065
  16. PREDNISONE. [Concomitant]
     Active Substance: PREDNISONE
  17. ACTEMRA [Suspect]
     Active Substance: TOCILIZUMAB
     Route: 042
  18. METHOTREXATE. [Suspect]
     Active Substance: METHOTREXATE
     Indication: RHEUMATOID ARTHRITIS
     Dosage: THERAPY DURATION: 6 YEARS
     Route: 048
     Dates: start: 2009, end: 2014
  19. METHOTREXATE. [Suspect]
     Active Substance: METHOTREXATE
     Dosage: THERAPY DURATION: 6 YEARS
     Route: 030
  20. ORENCIA [Suspect]
     Active Substance: ABATACEPT
     Indication: RHEUMATOID ARTHRITIS
     Route: 042
     Dates: start: 201104, end: 2014
  21. LANTUS [Concomitant]
     Active Substance: INSULIN GLARGINE
     Dosage: SOLUTION
     Route: 058
  22. VITAMIN D3 [Concomitant]
     Active Substance: CHOLECALCIFEROL
  23. XELJANZ [Concomitant]
     Active Substance: TOFACITINIB CITRATE
     Indication: RHEUMATOID ARTHRITIS
     Route: 048
     Dates: start: 20150810

REACTIONS (7)
  - Condition aggravated [Not Recovered/Not Resolved]
  - Interstitial lung disease [Not Recovered/Not Resolved]
  - Drug ineffective [Unknown]
  - Impaired work ability [Not Recovered/Not Resolved]
  - Red blood cell sedimentation rate abnormal [Not Recovered/Not Resolved]
  - Drug effect decreased [Not Recovered/Not Resolved]
  - Rheumatoid arthritis [Not Recovered/Not Resolved]
